FAERS Safety Report 8431669-2 (Version None)
Quarter: 2012Q2

REPORT INFORMATION
  Report Type: 
  Country: None (occurrence: None)
  Receive Date: 20120607
  Receipt Date: 20120607
  Transmission Date: 20120825
  Serious: Yes (Other)
  Sender: FDA-Public Use
  Company Number: None

PATIENT
  Age: 40 Year
  Sex: Female
  Weight: 56.246 kg

DRUGS (2)
  1. CITALOPRAM HYDROBROMIDE [Suspect]
     Indication: ANXIETY
     Dosage: 20 MG DAILY ORAL
     Route: 048
     Dates: start: 20111129, end: 20111215
  2. LEXAPRO [Suspect]

REACTIONS (3)
  - TREMOR [None]
  - NAUSEA [None]
  - HEADACHE [None]
